FAERS Safety Report 17364236 (Version 2)
Quarter: 2020Q1

REPORT INFORMATION
  Report Type: Spontaneous
  Country: FR (occurrence: FR)
  Receive Date: 20200204
  Receipt Date: 20200205
  Transmission Date: 20200409
  Serious: Yes (Other)
  Sender: FDA-Public Use
  Company Number: FR-ROCHE-2540025

PATIENT
  Sex: Female
  Weight: 45 kg

DRUGS (7)
  1. PARACETAMOL [Concomitant]
     Active Substance: ACETAMINOPHEN
     Indication: PAIN
  2. AVASTIN [Suspect]
     Active Substance: BEVACIZUMAB
     Indication: COLON CANCER METASTATIC
     Route: 042
     Dates: start: 201910, end: 202001
  3. SICCAFLUID [Concomitant]
     Indication: DRY EYE
  4. ALPRAZOLAM. [Concomitant]
     Active Substance: ALPRAZOLAM
  5. LERCANIDIPINE [Concomitant]
     Active Substance: LERCANIDIPINE
  6. FRAXIPARINE [Concomitant]
     Active Substance: NADROPARIN CALCIUM
  7. OPTIVE FUSION [Concomitant]
     Indication: DRY EYE

REACTIONS (1)
  - Hip fracture [Unknown]
